FAERS Safety Report 5299516-8 (Version None)
Quarter: 2007Q2

REPORT INFORMATION
  Report Type: 
  Country: None (occurrence: None)
  Receive Date: 20070410
  Receipt Date: 20070329
  Transmission Date: 20071010
  Serious: Yes (Other)
  Sender: FDA-Public Use
  Company Number: 2007307665

PATIENT
  Sex: Female
  Weight: 58.0604 kg

DRUGS (5)
  1. NASALCROM [Suspect]
     Indication: SINUS DISORDER
     Dosage: 1 SQUIRT PER NOSTRIL WHEN NECESSARY (1 IN 1 D), NASAL
     Route: 045
  2. GABAPENTIN [Concomitant]
  3. FLUDROCORTISONE ACETATE [Concomitant]
  4. SULAR [Concomitant]
  5. LEXAPRO [Concomitant]

REACTIONS (1)
  - DRUG DEPENDENCE [None]
